FAERS Safety Report 4595860-8 (Version None)
Quarter: 2005Q1

REPORT INFORMATION
  Report Type: 
  Country: None (occurrence: None)
  Receive Date: 20050302
  Receipt Date: 20050222
  Transmission Date: 20050727
  Serious: Yes (Hospitalization)
  Sender: FDA-Public Use
  Company Number: 200511506US

PATIENT
  Sex: Female

DRUGS (1)
  1. LANTUS [Suspect]
     Dosage: DOSE: UNK

REACTIONS (2)
  - BLOOD GLUCOSE INCREASED [None]
  - INFECTION [None]
